FAERS Safety Report 9240073 (Version 1)
Quarter: 2013Q2

REPORT INFORMATION
  Report Type: Spontaneous
  Country: US (occurrence: None)
  Receive Date: 20130418
  Receipt Date: 20130418
  Transmission Date: 20140414
  Serious: Yes (Other)
  Sender: FDA-Public Use
  Company Number: None

PATIENT
  Age: 68 Year
  Sex: Female
  Weight: 65.9 kg

DRUGS (1)
  1. ASMANEX [Suspect]
     Indication: ASTHMA
     Dosage: 2 PUFFS DAY
     Route: 048
     Dates: start: 20130116, end: 20130119

REACTIONS (8)
  - Discomfort [None]
  - Pyrexia [None]
  - Cough [None]
  - Chest discomfort [None]
  - Dyspnoea [None]
  - Lung disorder [None]
  - Pain [None]
  - Nasopharyngitis [None]
